FAERS Safety Report 25785628 (Version 1)
Quarter: 2025Q3

REPORT INFORMATION
  Report Type: Report from Study
  Country: CA (occurrence: CA)
  Receive Date: 20250910
  Receipt Date: 20250910
  Transmission Date: 20251021
  Serious: Yes (Other)
  Sender: ABBVIE
  Company Number: CA-ABBVIE-6449811

PATIENT
  Age: 69 Year
  Sex: Female

DRUGS (1)
  1. QULIPTA [Suspect]
     Active Substance: ATOGEPANT
     Indication: Migraine
     Route: 048
     Dates: start: 20230705, end: 202506

REACTIONS (3)
  - Surgery [Unknown]
  - Therapeutic product effect decreased [Unknown]
  - Headache [Unknown]

NARRATIVE: CASE EVENT DATE: 20250101
